FAERS Safety Report 9068878 (Version 1)
Quarter: 2013Q1

REPORT INFORMATION
  Report Type: Spontaneous
  Country: DE (occurrence: DE)
  Receive Date: 20130128
  Receipt Date: 20130128
  Transmission Date: 20140127
  Serious: Yes (Hospitalization, Other)
  Sender: FDA-Public Use
  Company Number: PHHY2012DE107694

PATIENT
  Sex: Female

DRUGS (2)
  1. GILENYA [Suspect]
     Indication: MULTIPLE SCLEROSIS
     Dosage: 0.5 MG, UNK
     Route: 048
     Dates: start: 20110503
  2. CIPRALEX [Concomitant]
     Dosage: 10 MG, DAILY
     Route: 048
     Dates: start: 20120705

REACTIONS (2)
  - Aortic valve stenosis [Recovered/Resolved]
  - Concomitant disease aggravated [Recovered/Resolved]
